FAERS Safety Report 13031381 (Version 1)
Quarter: 2016Q4

REPORT INFORMATION
  Report Type: Spontaneous
  Country: US (occurrence: US)
  Receive Date: 20161215
  Receipt Date: 20161215
  Transmission Date: 20170207
  Serious: No
  Sender: FDA-Public Use
  Company Number: US-ASTRAZENECA-2016SF29491

PATIENT
  Sex: Female

DRUGS (16)
  1. RANITIDINE. [Concomitant]
     Active Substance: RANITIDINE
     Route: 048
     Dates: start: 20160930
  2. PROPRANOLOL [Concomitant]
     Active Substance: PROPRANOLOL\PROPRANOLOL HYDROCHLORIDE
     Route: 048
     Dates: start: 20150902
  3. CRESTOR [Suspect]
     Active Substance: ROSUVASTATIN CALCIUM
     Dosage: DOSING UNKNOWN
     Route: 048
  4. FAMOTIDINE. [Concomitant]
     Active Substance: FAMOTIDINE
     Route: 048
     Dates: start: 20150102
  5. BIOTIN [Concomitant]
     Active Substance: BIOTIN
     Route: 048
     Dates: start: 20150930
  6. LYRICA [Concomitant]
     Active Substance: PREGABALIN
     Route: 048
     Dates: start: 20160527
  7. ASPIRIN. [Concomitant]
     Active Substance: ASPIRIN
     Route: 048
     Dates: start: 20140605
  8. FISH OIL [Concomitant]
     Active Substance: FISH OIL
     Route: 048
     Dates: start: 20150930
  9. PROBIOTIC BLEND ORAL [Concomitant]
     Route: 048
     Dates: start: 20150930
  10. XALATAN [Concomitant]
     Active Substance: LATANOPROST
     Dosage: 1 DROP IN BOTH EYES
     Route: 065
     Dates: start: 20150507
  11. COENZYME Q10 [Concomitant]
     Active Substance: UBIDECARENONE
     Route: 048
     Dates: start: 20140428
  12. ALPRAZOLAM. [Concomitant]
     Active Substance: ALPRAZOLAM
     Indication: ANXIETY
     Route: 048
     Dates: start: 20120828
  13. OSTEO BI-FLEX [Concomitant]
     Active Substance: CHONDROITIN SULFATE A\GLUCOSAMINE
     Route: 048
     Dates: start: 20150930
  14. MULTIVITAMINS CAPS [Concomitant]
     Route: 048
     Dates: start: 20141103
  15. BRINZOLAMIDE [Concomitant]
     Active Substance: BRINZOLAMIDE
     Dosage: 1 DROP RIGHT EYE TWICE
     Route: 065
     Dates: start: 20150102
  16. LIVALO [Concomitant]
     Active Substance: PITAVASTATIN CALCIUM
     Dosage: 2 MG, EVERY OTHER NIGHT AS TOLERATED
     Route: 048
     Dates: start: 20150305

REACTIONS (2)
  - Pain [Unknown]
  - Drug hypersensitivity [Unknown]
